FAERS Safety Report 17267365 (Version 3)
Quarter: 2020Q2

REPORT INFORMATION
  Report Type: Spontaneous
  Country: US (occurrence: US)
  Receive Date: 20200114
  Receipt Date: 20200421
  Transmission Date: 20200713
  Serious: Yes (Hospitalization, Other)
  Sender: FDA-Public Use
  Company Number: US-AMGEN-USASP2020004391

PATIENT
  Age: 82 Year
  Sex: Male

DRUGS (1)
  1. PROCRIT [Suspect]
     Active Substance: ERYTHROPOIETIN
     Indication: END STAGE RENAL DISEASE
     Dosage: 80,000 UNIT TOTAL/YEAR
     Route: 065
     Dates: start: 2000

REACTIONS (14)
  - Localised infection [Recovered/Resolved]
  - General physical health deterioration [Not Recovered/Not Resolved]
  - Neuropathy peripheral [Not Recovered/Not Resolved]
  - Therapeutic response shortened [Unknown]
  - Prostatic disorder [Not Recovered/Not Resolved]
  - Cerebrovascular accident [Recovered/Resolved]
  - Liver disorder [Not Recovered/Not Resolved]
  - Weight increased [Not Recovered/Not Resolved]
  - Vomiting [Recovered/Resolved]
  - Injection site warmth [Recovered/Resolved]
  - Myocardial infarction [Recovered/Resolved]
  - Renal disorder [Not Recovered/Not Resolved]
  - Asthenia [Not Recovered/Not Resolved]
  - Body height decreased [Not Recovered/Not Resolved]

NARRATIVE: CASE EVENT DATE: 2014
